FAERS Safety Report 6385586-2 (Version None)
Quarter: 2009Q4

REPORT INFORMATION
  Report Type: 
  Country: None (occurrence: None)
  Receive Date: 20091002
  Receipt Date: 20090921
  Transmission Date: 20100525
  Serious: Yes (Other)
  Sender: FDA-Public Use
  Company Number: US-PFIZER INC-2009273779

PATIENT
  Sex: Male
  Weight: 113.38 kg

DRUGS (7)
  1. LIPITOR [Suspect]
     Indication: MYOCARDIAL INFARCTION
     Dosage: 20 MG, UNK
  2. LIPITOR [Suspect]
     Dosage: 10 MG, 1X/DAY
     Route: 048
     Dates: start: 20061001
  3. METHYLPREDNISOLONE ACETATE [Concomitant]
     Indication: LATEX ALLERGY
     Dosage: 2 MG, ALTERNATE DAY
  4. ALTACE [Concomitant]
  5. TOPROL-XL [Concomitant]
  6. ACETYLSALICYLIC ACID [Concomitant]
  7. PLAVIX [Concomitant]

REACTIONS (2)
  - MUSCLE ATROPHY [None]
  - RESTLESS LEGS SYNDROME [None]
